FAERS Safety Report 4476472-3 (Version None)
Quarter: 2004Q4

REPORT INFORMATION
  Report Type: 
  Country: None (occurrence: None)
  Receive Date: 20041012
  Receipt Date: 20040923
  Transmission Date: 20050328
  Serious: Yes (Other)
  Sender: FDA-Public Use
  Company Number: DSA_25003_2004

PATIENT
  Age: 65 Year
  Sex: Female

DRUGS (2)
  1. TEVETEN [Suspect]
     Indication: HYPERTENSION
     Dosage: DF Q DAY PO
     Route: 048
     Dates: start: 19980422, end: 19980429
  2. TEVETEN [Suspect]
     Indication: HYPERTENSION
     Dosage: DF Q DAY PO
     Route: 048
     Dates: start: 19980505, end: 19980506

REACTIONS (2)
  - GINGIVITIS [None]
  - HYPERSENSITIVITY [None]
